FAERS Safety Report 15664006 (Version 1)
Quarter: 2018Q4

REPORT INFORMATION
  Report Type: Report from Study
  Country: US (occurrence: US)
  Receive Date: 20181128
  Receipt Date: 20181128
  Transmission Date: 20190205
  Serious: Yes (Other)
  Sender: FDA-Public Use
  Company Number: US-TAKEDA-2018TUS033750

PATIENT
  Age: 33 Year
  Sex: Male

DRUGS (1)
  1. PONATINIB [Suspect]
     Active Substance: PONATINIB
     Indication: ACUTE LYMPHOCYTIC LEUKAEMIA
     Dosage: 30 MG, QD
     Route: 048
     Dates: start: 20151204

REACTIONS (11)
  - Graft versus host disease in eye [Unknown]
  - Nausea [Unknown]
  - Balance disorder [Unknown]
  - Decreased appetite [Unknown]
  - Arthralgia [Unknown]
  - Gastrooesophageal reflux disease [Unknown]
  - Hypoacusis [Unknown]
  - Headache [Unknown]
  - Back pain [Recovering/Resolving]
  - Dizziness [Unknown]
  - Radiation necrosis [Unknown]

NARRATIVE: CASE EVENT DATE: 20180320
